FAERS Safety Report 9664156 (Version 1)
Quarter: 2013Q4

REPORT INFORMATION
  Report Type: Report from Study
  Country: BR (occurrence: BR)
  Receive Date: 20131101
  Receipt Date: 20131101
  Transmission Date: 20140711
  Serious: Yes (Other)
  Sender: FDA-Public Use
  Company Number: BR-ROCHE-1296279

PATIENT
  Age: 54 Year
  Sex: Male

DRUGS (4)
  1. PEG-INTERFERON ALFA 2A [Suspect]
     Indication: CHRONIC HEPATITIS C
     Route: 065
  2. VIRAZOLE [Suspect]
     Indication: CHRONIC HEPATITIS C
     Route: 065
  3. BOCEPREVIR [Concomitant]
     Indication: CHRONIC HEPATITIS C
     Route: 065
  4. PEGINTERFERON ALFA-2B [Concomitant]

REACTIONS (1)
  - Viral load increased [Unknown]
